FAERS Safety Report 9158332 (Version 1)
Quarter: 2013Q1

REPORT INFORMATION
  Report Type: Spontaneous
  Country: GB (occurrence: GB)
  Receive Date: 20130312
  Receipt Date: 20130312
  Transmission Date: 20140127
  Serious: Yes (Life-Threatening, Other)
  Sender: FDA-Public Use
  Company Number: GB-ROCHE-1200896

PATIENT
  Age: 78 Year
  Sex: Female
  Weight: 62.6 kg

DRUGS (7)
  1. ACTILYSE [Suspect]
     Indication: CEREBROVASCULAR ACCIDENT
     Dosage: 54 MG
     Route: 042
     Dates: start: 20130207, end: 20130207
  2. BENDROFLUMETHIAZIDE [Concomitant]
     Route: 048
  3. CITALOPRAM [Concomitant]
     Route: 048
  4. CLOBETASONE [Concomitant]
     Route: 061
  5. MOXONIDINE [Concomitant]
     Route: 048
  6. RAMIPRIL [Concomitant]
     Route: 048
  7. PRADAXA [Concomitant]
     Route: 065
     Dates: end: 20130207

REACTIONS (2)
  - Angioedema [Recovered/Resolved]
  - Swollen tongue [Recovered/Resolved]
